FAERS Safety Report 4735732-9 (Version None)
Quarter: 2005Q3

REPORT INFORMATION
  Report Type: 
  Country: None (occurrence: None)
  Receive Date: 20050805
  Receipt Date: 20050802
  Transmission Date: 20060218
  Serious: Yes (Death)
  Sender: FDA-Public Use
  Company Number: DK-SANOFI-SYNTHELABO-A01200505275

PATIENT
  Sex: Male

DRUGS (5)
  1. OXALIPLATIN [Suspect]
     Route: 042
     Dates: start: 20050719, end: 20050719
  2. FLUOROURACIL [Suspect]
     Dosage: BOLUS INJECTION FOLLOWED BY CONTINUOUS INFUSION OVER 46 HOURS
     Route: 042
     Dates: start: 20050719, end: 20050721
  3. PREDNISOLONE [Concomitant]
     Dates: start: 20050719, end: 20050720
  4. ZOFRAN [Concomitant]
     Dates: start: 20050719, end: 20050720
  5. CALCIUMFOLINAT [Concomitant]
     Dosage: UNKNOWN
     Route: 040
     Dates: start: 20050719, end: 20050719

REACTIONS (1)
  - CARDIAC ARREST [None]
